FAERS Safety Report 13676174 (Version 3)
Quarter: 2018Q1

REPORT INFORMATION
  Report Type: Spontaneous
  Country: US (occurrence: US)
  Receive Date: 20170622
  Receipt Date: 20180119
  Transmission Date: 20180508
  Serious: Yes (Hospitalization)
  Sender: FDA-Public Use
  Company Number: US-BIOGEN-2017BI00418443

PATIENT
  Sex: Female

DRUGS (5)
  1. TECFIDERA [Suspect]
     Active Substance: DIMETHYL FUMARATE
     Dosage: STARTING DOSE
     Route: 048
     Dates: start: 201706, end: 201706
  2. TECFIDERA [Suspect]
     Active Substance: DIMETHYL FUMARATE
     Indication: MULTIPLE SCLEROSIS
     Route: 065
     Dates: end: 201406
  3. TECFIDERA [Suspect]
     Active Substance: DIMETHYL FUMARATE
     Dosage: MAINTENANCE DOSE
     Route: 048
     Dates: start: 20170628, end: 20171116
  4. TECFIDERA [Suspect]
     Active Substance: DIMETHYL FUMARATE
     Dosage: MAINTENANCE DOSE
     Route: 065
     Dates: start: 201707
  5. TECFIDERA [Suspect]
     Active Substance: DIMETHYL FUMARATE
     Route: 065
     Dates: start: 20150110

REACTIONS (2)
  - Colon cancer stage IV [Unknown]
  - Leukopenia [Unknown]
